FAERS Safety Report 8138892-5 (Version None)
Quarter: 2012Q1

REPORT INFORMATION
  Report Type: 
  Country: None (occurrence: None)
  Receive Date: 20120215
  Receipt Date: 20120207
  Transmission Date: 20120608
  Serious: Yes (Other)
  Sender: FDA-Public Use
  Company Number: US-ELI_LILLY_AND_COMPANY-US201202002173

PATIENT
  Sex: Male

DRUGS (7)
  1. LISINOPRIL [Concomitant]
  2. METOPRIL [Concomitant]
  3. ASPIRIN [Concomitant]
  4. ENTOCORT EC [Concomitant]
     Dosage: UNK, PRN
     Route: 048
  5. EFFIENT [Suspect]
     Indication: STENT PLACEMENT
     Dosage: 10 MG, UNK
     Dates: start: 20111226
  6. LOVASTATIN [Concomitant]
  7. PREDNISONE TAB [Concomitant]

REACTIONS (3)
  - RASH [None]
  - STENT PLACEMENT [None]
  - COELIAC DISEASE [None]
